FAERS Safety Report 17137971 (Version 2)
Quarter: 2019Q4

REPORT INFORMATION
  Report Type: Other
  Country: DE (occurrence: DE)
  Receive Date: 20191211
  Receipt Date: 20191229
  Transmission Date: 20200122
  Serious: Yes (Hospitalization)
  Sender: FDA-Public Use
  Company Number: DE-DEXPHARM-20191116

PATIENT
  Age: 31 Year
  Sex: Male
  Weight: 110 kg

DRUGS (3)
  1. LITHIUM. [Interacting]
     Active Substance: LITHIUM
     Indication: SCHIZOAFFECTIVE DISORDER
     Dosage: 900 MG/DAY
     Route: 048
  2. VENLAFAXINE [Suspect]
     Active Substance: VENLAFAXINE HYDROCHLORIDE
     Indication: SCHIZOAFFECTIVE DISORDER
     Dosage: 150 MG/DAY
  3. CLOZAPINE. [Interacting]
     Active Substance: CLOZAPINE
     Indication: SCHIZOAFFECTIVE DISORDER
     Dosage: 100 MG/DAY

REACTIONS (2)
  - Cardiomyopathy [Recovering/Resolving]
  - Drug interaction [Unknown]
